FAERS Safety Report 13738990 (Version 1)
Quarter: 2017Q3

REPORT INFORMATION
  Report Type: Spontaneous
  Country: US (occurrence: US)
  Receive Date: 20170710
  Receipt Date: 20170710
  Transmission Date: 20171127
  Serious: No
  Sender: FDA-Public Use
  Company Number: US-SAOL THERAPEUTICS-2017SAO00606

PATIENT
  Sex: Female
  Weight: 56.69 kg

DRUGS (2)
  1. BACLOFEN. [Suspect]
     Active Substance: BACLOFEN
     Indication: MULTIPLE SCLEROSIS
     Dosage: 100 ?G, \DAY
     Dates: start: 20161118, end: 20170329
  2. BACLOFEN. [Suspect]
     Active Substance: BACLOFEN
     Indication: MUSCLE SPASMS
     Dosage: 108.4 ?G, \DAY
     Route: 037
     Dates: start: 20170329

REACTIONS (1)
  - Tendonitis [Unknown]
